FAERS Safety Report 21802961 (Version 1)
Quarter: 2022Q4

REPORT INFORMATION
  Report Type: Report from Study
  Country: US (occurrence: US)
  Receive Date: 20221231
  Receipt Date: 20221231
  Transmission Date: 20230112
  Serious: No
  Sender: FDA-Public Use
  Company Number: US-ACORDA-ACO_173867_2022

PATIENT
  Sex: Male

DRUGS (5)
  1. INBRIJA [Suspect]
     Active Substance: LEVODOPA
     Indication: Parkinson^s disease
     Dosage: 2 DOSAGE FORM (84MG), PRN, NOT TO EXCEED 5 DOSES A DAY
     Dates: start: 20221028
  2. INBRIJA [Suspect]
     Active Substance: LEVODOPA
     Indication: On and off phenomenon
     Dosage: 2 DOSAGE FORM (84MG), PRN, NOT TO EXCEED 5 DOSES A DAY
     Dates: start: 20221028
  3. INBRIJA [Suspect]
     Active Substance: LEVODOPA
     Dosage: 2 DOSAGE FORM (84MG), PRN, NOT TO EXCEED 5 DOSES A DAY
     Dates: start: 20221028
  4. CARBIDOPA\LEVODOPA [Concomitant]
     Active Substance: CARBIDOPA\LEVODOPA
     Indication: Product used for unknown indication
     Dosage: 25/100MG: 2 PILLS IN AM AND THEN 1.5 PILLS 3X/DAY
     Route: 065
  5. CARBIDOPA\LEVODOPA [Concomitant]
     Active Substance: CARBIDOPA\LEVODOPA
     Dosage: 50/200MG: 1 PILL @BEDTIME
     Route: 065

REACTIONS (3)
  - Therapy interrupted [Unknown]
  - Device issue [Unknown]
  - Device delivery system issue [Unknown]
